FAERS Safety Report 5793284-9 (Version None)
Quarter: 2008Q2

REPORT INFORMATION
  Report Type: 
  Country: None (occurrence: None)
  Receive Date: 20080627
  Receipt Date: 20080620
  Transmission Date: 20081010
  Serious: Yes (Hospitalization)
  Sender: FDA-Public Use
  Company Number: FR-ASTRAZENECA-2008CG00973

PATIENT
  Age: 31186 Day
  Sex: Female

DRUGS (7)
  1. TENORMIN [Suspect]
     Route: 048
     Dates: end: 20080509
  2. MEMANTINE HCL [Suspect]
     Route: 048
     Dates: end: 20080509
  3. ARIMIDEX [Concomitant]
     Route: 048
  4. RAMIPRIL [Concomitant]
  5. MODOPAR [Concomitant]
     Dosage: 300 + 75 MG  DAILY
  6. FOLIC ACID [Concomitant]
  7. TAHOR [Concomitant]

REACTIONS (2)
  - LOSS OF CONSCIOUSNESS [None]
  - MALAISE [None]
